FAERS Safety Report 4413054-3 (Version None)
Quarter: 2004Q3

REPORT INFORMATION
  Report Type: 
  Country: None (occurrence: None)
  Receive Date: 20040727
  Receipt Date: 20040716
  Transmission Date: 20050211
  Serious: Yes (Hospitalization)
  Sender: FDA-Public Use
  Company Number: 2004216395US

PATIENT
  Age: 57 Year
  Sex: Male
  Weight: 107.6 kg

DRUGS (4)
  1. ESTRACYT (ESTRAMUSTINE PHOSPHATE) CAPSULE [Suspect]
     Indication: PROSTATE CANCER
     Dosage: 140 MG, TID, ORAL
     Route: 048
     Dates: start: 20040510, end: 20040523
  2. PACLITAXEL [Suspect]
     Indication: PROSTATE CANCER
     Dosage: 290 MG, X 1, CYCLIC, IV
     Route: 042
     Dates: start: 20040511
  3. ETOPOSIDE [Suspect]
     Indication: PROSTATE CANCER
     Dosage: 50 MG, TID, ORAL
     Route: 048
     Dates: start: 20040510, end: 20040523
  4. RADIATION THERAPY [Concomitant]

REACTIONS (12)
  - ASTHENIA [None]
  - BLADDER DISORDER [None]
  - BLOOD CREATININE INCREASED [None]
  - CHILLS [None]
  - HYDRONEPHROSIS [None]
  - MALAISE [None]
  - NAUSEA [None]
  - PYREXIA [None]
  - RADIATION INJURY [None]
  - RETCHING [None]
  - URETERIC OBSTRUCTION [None]
  - URINARY TRACT INFECTION [None]
